FAERS Safety Report 10545956 (Version 2)
Quarter: 2014Q4

REPORT INFORMATION
  Report Type: Report from Study
  Country: US (occurrence: US)
  Receive Date: 20141027
  Receipt Date: 20141125
  Transmission Date: 20150529
  Serious: Yes (Other)
  Sender: FDA-Public Use
  Company Number: US-SA-2014SA142942

PATIENT
  Age: 51 Year
  Sex: Male
  Weight: 234.5 kg

DRUGS (4)
  1. SOLOSTAR [Concomitant]
     Active Substance: DEVICE
  2. GLIPIZIDE. [Concomitant]
     Active Substance: GLIPIZIDE
  3. DEPAKOTE ER [Concomitant]
     Active Substance: DIVALPROEX SODIUM
     Indication: BIPOLAR DISORDER
  4. LANTUS SOLOSTAR [Suspect]
     Active Substance: INSULIN GLARGINE
     Indication: TYPE 2 DIABETES MELLITUS
     Dosage: DOSE: 25 UNITS UNSPECIFIED
     Route: 065

REACTIONS (5)
  - Seizure [Unknown]
  - Pain in extremity [Unknown]
  - Bipolar disorder [Unknown]
  - Back pain [Unknown]
  - Renal pain [Unknown]
